FAERS Safety Report 23337588 (Version 2)
Quarter: 2024Q1

REPORT INFORMATION
  Report Type: Spontaneous
  Country: GB (occurrence: GB)
  Receive Date: 20231226
  Receipt Date: 20240104
  Transmission Date: 20240409
  Serious: Yes (Other)
  Sender: FDA-Public Use
  Company Number: None

PATIENT
  Age: 18 Year
  Sex: Male
  Weight: 49 kg

DRUGS (9)
  1. AMOXICILLIN\CLAVULANATE POTASSIUM [Suspect]
     Active Substance: AMOXICILLIN\CLAVULANATE POTASSIUM
     Dosage: 500MG/125MG TABLETSTAKE ONE 3 TIMES/DAY FOR 7 DAYS
     Route: 065
     Dates: start: 20231211
  2. AMOXICILLIN\CLAVULANATE POTASSIUM [Suspect]
     Active Substance: AMOXICILLIN\CLAVULANATE POTASSIUM
     Indication: Product used for unknown indication
     Dosage: UNK
     Route: 065
     Dates: start: 20231218
  3. ACYCLOVIR [Concomitant]
     Active Substance: ACYCLOVIR
     Indication: Ill-defined disorder
     Dosage: TAKE ONE TABLET FIVE TIMES A DAY FOR 7 DAYS TO ...
     Route: 065
     Dates: start: 20231116, end: 20231123
  4. ALLOPURINOL [Concomitant]
     Active Substance: ALLOPURINOL
     Indication: Ill-defined disorder
     Dosage: 50 MG (2.5MLS) DAILY, AS PER IBD TEAM ADVICE
     Route: 065
     Dates: start: 20231102, end: 20231130
  5. AMOXICILLIN [Concomitant]
     Active Substance: AMOXICILLIN
     Indication: Ill-defined disorder
     Dosage: TAKE ONE 3 TIMES/DAY FOR 5 DAYS
     Route: 065
     Dates: start: 20231201, end: 20231206
  6. AZATHIOPRINE [Concomitant]
     Active Substance: AZATHIOPRINE
     Indication: Ill-defined disorder
     Dosage: ONE DAILY (TOTAL DAILY DOSE 25MG)
     Route: 065
     Dates: start: 20230509
  7. CHLORAMPHENICOL [Concomitant]
     Active Substance: CHLORAMPHENICOL
     Indication: Ill-defined disorder
     Dosage: APPLY 4 TIMES/DAY
     Route: 065
     Dates: start: 20231116, end: 20231121
  8. AMOXICILLIN\CLAVULANATE POTASSIUM [Concomitant]
     Active Substance: AMOXICILLIN\CLAVULANATE POTASSIUM
     Indication: Ill-defined disorder
     Dosage: TAKE ONE 3 TIMES/DAY FOR 7 DAYS
     Route: 065
     Dates: start: 20231211, end: 20231218
  9. LEVOTHYROXINE [Concomitant]
     Active Substance: LEVOTHYROXINE
     Indication: Ill-defined disorder
     Dosage: TAKE ONE DAILY AS PER CONSULTANT
     Route: 065
     Dates: start: 20230123

REACTIONS (1)
  - Rash [Unknown]

NARRATIVE: CASE EVENT DATE: 20231218
